FAERS Safety Report 9904356 (Version 2)
Quarter: 2014Q2

REPORT INFORMATION
  Report Type: Spontaneous
  Country: US (occurrence: US)
  Receive Date: 20140218
  Receipt Date: 20140402
  Transmission Date: 20141212
  Serious: No
  Sender: FDA-Public Use
  Company Number: US-PFIZER INC-2014044782

PATIENT
  Age: 67 Year
  Sex: Female
  Weight: 59.86 kg

DRUGS (4)
  1. LYRICA [Suspect]
     Indication: NEUROPATHY PERIPHERAL
     Dosage: 25 MG, 3X/DAY
     Dates: start: 201304
  2. LYRICA [Suspect]
     Indication: ERYTHROMELALGIA
  3. ELAVIL [Concomitant]
     Indication: CYSTITIS INTERSTITIAL
     Dosage: 12.5 MG, DAILY AT BEDTIME
  4. KLONOPIN [Concomitant]
     Indication: SLEEP DISORDER
     Dosage: CUTTING 1MG TABLET IN FOUR QUARTERS AND TAKING ONE QUARTER DAILY

REACTIONS (4)
  - Rash [Not Recovered/Not Resolved]
  - Blister [Not Recovered/Not Resolved]
  - Drug ineffective [Unknown]
  - Condition aggravated [Unknown]
